FAERS Safety Report 15874026 (Version 2)
Quarter: 2020Q1

REPORT INFORMATION
  Report Type: Other
  Country: US (occurrence: US)
  Receive Date: 20190126
  Receipt Date: 20200126
  Transmission Date: 20200409
  Serious: No
  Sender: FDA-Public Use
  Company Number: US-ACORDA-ACO_151758_2018

PATIENT
  Sex: Male

DRUGS (4)
  1. AMPYRA [Suspect]
     Active Substance: DALFAMPRIDINE
     Indication: BALANCE DISORDER
  2. REBIF [Suspect]
     Active Substance: INTERFERON BETA-1A
     Indication: PRODUCT USED FOR UNKNOWN INDICATION
     Dosage: 44 MCG, 3X/WK
     Route: 058
  3. AMPYRA [Suspect]
     Active Substance: DALFAMPRIDINE
     Indication: MOBILITY DECREASED
     Dosage: 10 MG, BID
     Route: 048
     Dates: start: 201811, end: 201901
  4. AMPYRA [Suspect]
     Active Substance: DALFAMPRIDINE
     Indication: MULTIPLE SCLEROSIS
     Dosage: 10 MG, BID
     Route: 048
     Dates: start: 20180601, end: 20180701

REACTIONS (8)
  - Gait disturbance [Unknown]
  - Condition aggravated [Unknown]
  - Fatigue [Unknown]
  - Drug ineffective [Unknown]
  - Injection site erythema [Unknown]
  - Balance disorder [Not Recovered/Not Resolved]
  - Off label use [Unknown]
  - Asthenia [Unknown]
